FAERS Safety Report 8699367 (Version 2)
Quarter: 2013Q4

REPORT INFORMATION
  Report Type: Spontaneous
  Country: US (occurrence: US)
  Receive Date: 20120802
  Receipt Date: 20131101
  Transmission Date: 20140711
  Serious: No
  Sender: FDA-Public Use
  Company Number: US-009507513-1207USA002879

PATIENT
  Age: 62 Year
  Sex: Female

DRUGS (4)
  1. ASMANEX TWISTHALER [Suspect]
     Indication: ASTHMA
     Dosage: 1 STANDARD DOSE OF 60
     Route: 055
  2. NASONEX [Concomitant]
  3. PRAVASTATIN SODIUM [Concomitant]
  4. VITAMINS (UNSPECIFIED) [Concomitant]

REACTIONS (2)
  - Dyspnoea [Recovering/Resolving]
  - Drug dose omission [Unknown]
